FAERS Safety Report 9280568 (Version 1)
Quarter: 2013Q2

REPORT INFORMATION
  Report Type: Report from Study
  Country: DE (occurrence: DE)
  Receive Date: 20130509
  Receipt Date: 20130509
  Transmission Date: 20140414
  Serious: Yes (Death, Hospitalization)
  Sender: FDA-Public Use
  Company Number: DE-ROCHE-1222546

PATIENT
  Sex: Male
  Weight: 94.7 kg

DRUGS (7)
  1. BEVACIZUMAB [Suspect]
     Indication: COLORECTAL CANCER METASTATIC
     Route: 042
     Dates: start: 20121102, end: 20130214
  2. OXALIPLATIN [Suspect]
     Indication: COLORECTAL CANCER METASTATIC
     Route: 042
     Dates: start: 20121102, end: 20130214
  3. FLUOROURACIL [Suspect]
     Indication: COLORECTAL CANCER METASTATIC
     Route: 042
     Dates: start: 20121102, end: 20130214
  4. FLUOROURACIL [Suspect]
     Route: 042
     Dates: start: 20121102, end: 20130214
  5. SIMETICONE [Concomitant]
     Indication: FLATULENCE
     Route: 048
     Dates: end: 20130326
  6. NOVALGIN [Concomitant]
     Indication: PAIN
     Dosage: AS REQUIRED
     Route: 048
     Dates: end: 20130326
  7. VITAMIN B DUO [Concomitant]
     Indication: PROPHYLAXIS
     Route: 048
     Dates: end: 20130326

REACTIONS (4)
  - Ascites [Fatal]
  - Hepatic failure [Fatal]
  - Neoplasm malignant [Fatal]
  - Multi-organ failure [Fatal]
